FAERS Safety Report 15608286 (Version 1)
Quarter: 2018Q4

REPORT INFORMATION
  Report Type: Report from Study
  Country: US (occurrence: US)
  Receive Date: 20181112
  Receipt Date: 20181112
  Transmission Date: 20190205
  Serious: Yes (Death, Other)
  Sender: FDA-Public Use
  Company Number: US-NAPPMUNDI-USA-2015-0145159

PATIENT
  Age: 66 Year
  Sex: Male

DRUGS (1)
  1. OXYCODONE HYDROCHLORIDE. [Suspect]
     Active Substance: OXYCODONE HYDROCHLORIDE
     Indication: PRODUCT USED FOR UNKNOWN INDICATION
     Dosage: 40 MG, UNK
     Route: 048

REACTIONS (6)
  - Hypoxic-ischaemic encephalopathy [Fatal]
  - Overdose [Fatal]
  - Cardiac arrest [Fatal]
  - Drug abuse [Fatal]
  - Gastrointestinal haemorrhage [Fatal]
  - Nasogastric output abnormal [Unknown]

NARRATIVE: CASE EVENT DATE: 20140714
